FAERS Safety Report 9832829 (Version 1)
Quarter: 2014Q1

REPORT INFORMATION
  Report Type: Spontaneous
  Country: DE (occurrence: DE)
  Receive Date: 20140121
  Receipt Date: 20140121
  Transmission Date: 20141002
  Serious: Yes (Other)
  Sender: FDA-Public Use
  Company Number: DE-VIIV HEALTHCARE LIMITED-D0082529A

PATIENT
  Age: 0 None
  Sex: Male
  Weight: 3.1 kg

DRUGS (3)
  1. COMBIVIR [Suspect]
     Indication: HIV INFECTION
     Route: 064
  2. INVIRASE [Suspect]
     Indication: HIV INFECTION
     Route: 064
  3. NORVIR [Suspect]
     Indication: HIV INFECTION
     Route: 064

REACTIONS (5)
  - Thrombocytopenia neonatal [Recovering/Resolving]
  - Sepsis [Unknown]
  - Rotavirus infection [Unknown]
  - Haematochezia [Unknown]
  - Diarrhoea [Unknown]
